FAERS Safety Report 11037166 (Version 1)
Quarter: 2015Q2

REPORT INFORMATION
  Report Type: Spontaneous
  Country: US (occurrence: None)
  Receive Date: 20150415
  Receipt Date: 20150415
  Transmission Date: 20150821
  Serious: No
  Sender: FDA-Public Use
  Company Number: None

PATIENT
  Age: 52 Year
  Sex: Female
  Weight: 45.36 kg

DRUGS (1)
  1. EXJADE [Suspect]
     Active Substance: DEFERASIROX
     Indication: PORPHYRIN METABOLISM DISORDER
     Dosage: 1000 MG  DAILY  ORAL
     Route: 048
     Dates: start: 20140721

REACTIONS (4)
  - Tooth disorder [None]
  - Bone disorder [None]
  - Hepatic pain [None]
  - Bone loss [None]

NARRATIVE: CASE EVENT DATE: 201503
